FAERS Safety Report 23514871 (Version 2)
Quarter: 2024Q1

REPORT INFORMATION
  Report Type: Spontaneous
  Country: IT (occurrence: IT)
  Receive Date: 20240212
  Receipt Date: 20240322
  Transmission Date: 20240410
  Serious: Yes (Hospitalization, Other)
  Sender: FDA-Public Use
  Company Number: IT-Eisai-EC-2024-157946

PATIENT
  Age: 57 Year
  Sex: Female
  Weight: 55 kg

DRUGS (7)
  1. TACROLIMUS [Suspect]
     Active Substance: TACROLIMUS
     Indication: Immunosuppression
     Dosage: 4 MILLIGRAM, QD
     Route: 048
     Dates: start: 20220726
  2. LENVATINIB [Suspect]
     Active Substance: LENVATINIB
     Indication: Hepatocellular carcinoma
     Dosage: 4 MILLIGRAM, QD
     Route: 048
     Dates: start: 20220531, end: 20221206
  3. LENVATINIB [Suspect]
     Active Substance: LENVATINIB
     Dosage: 8 MILLIGRAM, QD
     Route: 048
     Dates: start: 20221207, end: 202301
  4. LENVATINIB [Suspect]
     Active Substance: LENVATINIB
     Dosage: 4 MILLIGRAM, QD
     Route: 048
     Dates: start: 20230316
  5. ENTECAVIR [Concomitant]
     Active Substance: ENTECAVIR
     Indication: Hepatitis B
     Dosage: 0.5 MILLIGRAM, QD
     Route: 048
     Dates: start: 20220217
  6. PANTOPRAZOLE [Concomitant]
     Active Substance: PANTOPRAZOLE
     Indication: Prophylaxis
     Dosage: 20 MILLIGRAM, QD
     Route: 048
     Dates: start: 20220217
  7. ACETAMINOPHEN [Concomitant]
     Active Substance: ACETAMINOPHEN
     Indication: Headache
     Dosage: 1 GRAM, QD
     Route: 048
     Dates: start: 20220613

REACTIONS (3)
  - Hypertensive emergency [Recovered/Resolved]
  - Transient ischaemic attack [Recovered/Resolved]
  - Abdominal pain [Recovered/Resolved]

NARRATIVE: CASE EVENT DATE: 20230101
